FAERS Safety Report 9887922 (Version 1)
Quarter: 2014Q1

REPORT INFORMATION
  Report Type: Spontaneous
  Country: TR (occurrence: None)
  Receive Date: 20140207
  Receipt Date: 20140207
  Transmission Date: 20141002
  Serious: Yes (Other)
  Sender: FDA-Public Use
  Company Number: FK201400322

PATIENT
  Age: 87 Year
  Sex: Male

DRUGS (3)
  1. METHYLPREDNISOLONE SODIUM SUCCINATE [Suspect]
     Indication: TEMPORAL ARTERITIS
  2. AMPICILLIN-SULBACTAM (UNACID) [Concomitant]
  3. CLARITHROMYCIN [Concomitant]

REACTIONS (1)
  - Cytomegalovirus oesophagitis [None]
